FAERS Safety Report 14663967 (Version 2)
Quarter: 2018Q2

REPORT INFORMATION
  Report Type: Spontaneous
  Country: RO (occurrence: RO)
  Receive Date: 20180321
  Receipt Date: 20180423
  Transmission Date: 20180711
  Serious: Yes (Hospitalization)
  Sender: FDA-Public Use
  Company Number: RO-AUROBINDO-AUR-APL-2018-015049

PATIENT
  Age: 49 Year
  Sex: Female

DRUGS (1)
  1. ARIPIPRAZOLE. [Suspect]
     Active Substance: ARIPIPRAZOLE
     Indication: SCHIZOPHRENIA
     Dosage: UNK
     Route: 065

REACTIONS (4)
  - Birdshot chorioretinopathy [Recovering/Resolving]
  - Chorioretinopathy [Recovering/Resolving]
  - Choroiditis [Recovering/Resolving]
  - Uveitis [Recovering/Resolving]
